FAERS Safety Report 7809886 (Version 5)
Quarter: 2013Q1

REPORT INFORMATION
  Report Type: Spontaneous
  Country: US (occurrence: US)
  Receive Date: 20110211
  Receipt Date: 20130122
  Transmission Date: 20140127
  Serious: Yes (Other)
  Sender: FDA-Public Use
  Company Number: PHHY2010US75682

PATIENT
  Age: 69 Year
  Sex: Female
  Weight: 74.38 kg

DRUGS (3)
  1. GILENYA [Suspect]
     Indication: MULTIPLE SCLEROSIS
     Dosage: 0.5 MG, QD
     Route: 048
     Dates: start: 20101106
  2. METFORMIN [Suspect]
  3. VOLTAREN [Concomitant]

REACTIONS (15)
  - Rhinitis [Recovering/Resolving]
  - Pyrexia [Not Recovered/Not Resolved]
  - Body temperature increased [Recovering/Resolving]
  - Oropharyngeal pain [Not Recovered/Not Resolved]
  - Functional gastrointestinal disorder [Unknown]
  - Abdominal pain upper [Not Recovered/Not Resolved]
  - Feeling abnormal [Recovered/Resolved]
  - Diarrhoea [Not Recovered/Not Resolved]
  - Back pain [Not Recovered/Not Resolved]
  - Influenza [Recovered/Resolved]
  - Fatigue [Not Recovered/Not Resolved]
  - Asthenia [Recovered/Resolved]
  - Pain [Recovered/Resolved]
  - Cough [Not Recovered/Not Resolved]
  - Dizziness [Recovered/Resolved]
